FAERS Safety Report 11423772 (Version 1)
Quarter: 2015Q3

REPORT INFORMATION
  Report Type: Spontaneous
  Country: US (occurrence: US)
  Receive Date: 20150827
  Receipt Date: 20150827
  Transmission Date: 20151125
  Serious: No
  Sender: FDA-Public Use
  Company Number: US-JNJFOC-20141220255

PATIENT
  Age: 9 Year
  Sex: Male
  Weight: 45.36 kg

DRUGS (2)
  1. CHILDRENS MOTRIN [Suspect]
     Active Substance: IBUPROFEN
     Route: 048
  2. CHILDRENS MOTRIN [Suspect]
     Active Substance: IBUPROFEN
     Indication: TOOTHACHE
     Dosage: 4 TEASPOONS
     Route: 048
     Dates: start: 20141223, end: 20141223

REACTIONS (4)
  - Incorrect dose administered [Unknown]
  - Throat irritation [Recovered/Resolved]
  - Inappropriate schedule of drug administration [Unknown]
  - Product physical issue [Unknown]

NARRATIVE: CASE EVENT DATE: 20141223
